FAERS Safety Report 5592893-X (Version None)
Quarter: 2008Q1

REPORT INFORMATION
  Report Type: 
  Country: None (occurrence: None)
  Receive Date: 20080116
  Receipt Date: 20080103
  Transmission Date: 20080703
  Serious: Yes (Other)
  Sender: FDA-Public Use
  Company Number: US-AMGEN-US255416

PATIENT
  Sex: Male
  Weight: 123.5 kg

DRUGS (9)
  1. PROCRIT [Suspect]
     Indication: RENAL FAILURE CHRONIC
     Route: 058
     Dates: start: 20070702, end: 20071127
  2. COUMADIN [Concomitant]
  3. LASIX [Concomitant]
  4. PREDNISONE TAB [Concomitant]
  5. PRILOSEC [Concomitant]
  6. MESTINON [Concomitant]
     Indication: MYASTHENIA GRAVIS
  7. PROSCAR [Concomitant]
  8. BLOOD CELLS, PACKED HUMAN [Concomitant]
     Route: 042
  9. CEPHALEXIN [Concomitant]

REACTIONS (3)
  - APLASIA PURE RED CELL [None]
  - BLOOD IRON ABNORMAL [None]
  - DRUG INEFFECTIVE [None]
